FAERS Safety Report 21439151 (Version 2)
Quarter: 2022Q4

REPORT INFORMATION
  Report Type: Spontaneous
  Country: GR (occurrence: GR)
  Receive Date: 20221011
  Receipt Date: 20221020
  Transmission Date: 20230112
  Serious: Yes (Other)
  Sender: FDA-Public Use
  Company Number: GR-MYLANLABS-2022M1111142

PATIENT
  Age: 64 Year
  Sex: Female

DRUGS (4)
  1. XANAX [Suspect]
     Active Substance: ALPRAZOLAM
     Indication: Product used for unknown indication
     Dosage: UNK
     Route: 065
  2. ZOLOFT [Suspect]
     Active Substance: SERTRALINE HYDROCHLORIDE
     Indication: Product used for unknown indication
     Dosage: 50 MILLIGRAM, QD
     Route: 065
  3. ZOLOFT [Suspect]
     Active Substance: SERTRALINE HYDROCHLORIDE
     Dosage: 100 MILLIGRAM, QD
     Route: 065
  4. ZOLOFT [Suspect]
     Active Substance: SERTRALINE HYDROCHLORIDE
     Dosage: 50 MILLIGRAM, QD
     Route: 065

REACTIONS (5)
  - Myocardial infarction [Unknown]
  - Drug ineffective [Unknown]
  - Therapeutic product effect increased [Unknown]
  - Intentional product use issue [Unknown]
  - Wrong technique in product usage process [Unknown]
